FAERS Safety Report 12563738 (Version 2)
Quarter: 2016Q3

REPORT INFORMATION
  Report Type: Spontaneous
  Country: US (occurrence: US)
  Receive Date: 20160716
  Receipt Date: 20160819
  Transmission Date: 20161109
  Serious: No
  Sender: FDA-Public Use
  Company Number: US-ASTRAZENECA-2016SE66074

PATIENT
  Age: 83 Year
  Sex: Male
  Weight: 56.7 kg

DRUGS (2)
  1. SYMBICORT [Suspect]
     Active Substance: BUDESONIDE\FORMOTEROL FUMARATE DIHYDRATE
     Indication: CHRONIC OBSTRUCTIVE PULMONARY DISEASE
     Dosage: 160/4.5 MCG, TWO PUFFS IN THE MORNING AND TWO PUFFS IN THE EVENING
     Route: 055
     Dates: start: 2009
  2. COMBOVIENT [Concomitant]
     Indication: INHALATION THERAPY
     Dosage: 4.0G AS REQUIRED
     Route: 055
     Dates: start: 2009

REACTIONS (5)
  - Panic attack [Recovered/Resolved]
  - Drug dose omission [Unknown]
  - Product packaging quantity issue [Unknown]
  - Dyspnoea [Recovered/Resolved]
  - Product quality issue [Unknown]
